FAERS Safety Report 8309965-9 (Version None)
Quarter: 2012Q2

REPORT INFORMATION
  Report Type: 
  Country: None (occurrence: None)
  Receive Date: 20120425
  Receipt Date: 20120419
  Transmission Date: 20120825
  Serious: Yes (Death, Hospitalization)
  Sender: FDA-Public Use
  Company Number: AR-PFIZER INC-2012098618

PATIENT
  Age: 51 Year
  Sex: Female

DRUGS (3)
  1. TEMSIROLIMUS [Suspect]
     Indication: RENAL CELL CARCINOMA
     Dosage: 25 MG, WEEKLY
     Dates: start: 20100701, end: 20101201
  2. TEMSIROLIMUS [Suspect]
     Dosage: UNK
     Dates: start: 20110201
  3. ZOMETA [Concomitant]
     Dosage: UNK

REACTIONS (12)
  - RENAL CELL CARCINOMA [None]
  - DISEASE PROGRESSION [None]
  - DYSPNOEA [None]
  - STOMATITIS [None]
  - HYPERGLYCAEMIA [None]
  - LUNG INFILTRATION [None]
  - DISORIENTATION [None]
  - RASH [None]
  - PYREXIA [None]
  - HEADACHE [None]
  - GENERAL PHYSICAL HEALTH DETERIORATION [None]
  - COUGH [None]
